FAERS Safety Report 9455219 (Version 3)
Quarter: 2013Q2

REPORT INFORMATION
  Report Type: Spontaneous
  Country: DE (occurrence: None)
  Receive Date: 20130320
  Receipt Date: 20130419
  Transmission Date: 20140414
  Serious: Yes (Life-Threatening, Hospitalization)
  Sender: FDA-Public Use
  Company Number: 220820

PATIENT
  Age: 75 Year
  Sex: Male
  Weight: 75 kg

DRUGS (2)
  1. INNOHEP (TINZAPARIN SODIUM) [Suspect]
     Indication: THROMBOSIS PROPHYLAXIS
     Route: 058
     Dates: start: 20130307, end: 20130311
  2. IBUPROFEN (IBUPROFEN) [Suspect]
     Indication: PAIN
     Route: 048
     Dates: start: 20130307, end: 20130311

REACTIONS (4)
  - Accidental overdose [None]
  - Abdominal wall haemorrhage [None]
  - Shock [None]
  - Renal failure acute [None]
